FAERS Safety Report 11719478 (Version 1)
Quarter: 2015Q4

REPORT INFORMATION
  Report Type: Spontaneous
  Country: US (occurrence: None)
  Receive Date: 20151109
  Receipt Date: 20151109
  Transmission Date: 20160304
  Serious: Yes (Other)
  Sender: FDA-Public Use
  Company Number: None

PATIENT
  Age: 48 Year
  Sex: Female
  Weight: 63.5 kg

DRUGS (4)
  1. VITAMIN D [Concomitant]
     Active Substance: CHOLECALCIFEROL
  2. LEVOXYL [Concomitant]
     Active Substance: LEVOTHYROXINE SODIUM
  3. RAMIPRIL. [Concomitant]
     Active Substance: RAMIPRIL
  4. NITROFURANTOIN MONOHYDRATE/MACROCRYSTALS [Suspect]
     Active Substance: NITROFURANTOIN\NITROFURANTOIN MONOHYDRATE
     Indication: URINARY TRACT INFECTION
     Dosage: 1 PILL
     Route: 048

REACTIONS (6)
  - Nausea [None]
  - Influenza like illness [None]
  - Dyspnoea [None]
  - Unevaluable event [None]
  - Chest pain [None]
  - Dizziness [None]

NARRATIVE: CASE EVENT DATE: 20151107
